FAERS Safety Report 9995529 (Version 3)
Quarter: 2014Q1

REPORT INFORMATION
  Report Type: Report from Study
  Country: ES (occurrence: ES)
  Receive Date: 20140311
  Receipt Date: 20140326
  Transmission Date: 20141002
  Serious: Yes (Other)
  Sender: FDA-Public Use
  Company Number: ES-SA-200214020EU

PATIENT
  Age: 68 Year
  Sex: Female
  Weight: 44 kg

DRUGS (11)
  1. DOCETAXEL [Suspect]
     Indication: BREAST CANCER
     Route: 042
     Dates: start: 20020620, end: 20020620
  2. DOCETAXEL [Suspect]
     Indication: BREAST CANCER
     Route: 042
     Dates: start: 20020821, end: 20020821
  3. TRASTUZUMAB [Suspect]
     Indication: BREAST CANCER
     Route: 042
     Dates: start: 20020619, end: 20020619
  4. TRASTUZUMAB [Suspect]
     Indication: BREAST CANCER
     Route: 042
     Dates: start: 20020904, end: 20020904
  5. TRASTUZUMAB [Suspect]
     Indication: BREAST CANCER
     Route: 042
     Dates: start: 20020911, end: 20020911
  6. TRASTUZUMAB [Suspect]
     Indication: BREAST CANCER
     Route: 042
     Dates: start: 20021113, end: 20021113
  7. DOXORUBICIN [Suspect]
     Indication: BREAST CANCER
     Route: 042
     Dates: start: 20020326, end: 20020326
  8. DOXORUBICIN [Suspect]
     Indication: BREAST CANCER
     Route: 042
     Dates: start: 20020524, end: 20020524
  9. CYCLOPHOSPHAMIDE [Suspect]
     Indication: BREAST CANCER
     Route: 042
     Dates: start: 20020326, end: 20020326
  10. CYCLOPHOSPHAMIDE [Suspect]
     Indication: BREAST CANCER
     Route: 042
     Dates: start: 20020524, end: 20020524
  11. ATARAX [Concomitant]
     Indication: HYPERSENSITIVITY
     Route: 048
     Dates: start: 20021105, end: 20021204

REACTIONS (4)
  - Cardiac failure congestive [Not Recovered/Not Resolved]
  - Dyspnoea [Not Recovered/Not Resolved]
  - Tachycardia [Not Recovered/Not Resolved]
  - Pain in extremity [Not Recovered/Not Resolved]
